FAERS Safety Report 5135836-5 (Version None)
Quarter: 2006Q4

REPORT INFORMATION
  Report Type: 
  Country: None (occurrence: None)
  Receive Date: 20061020
  Receipt Date: 20061009
  Transmission Date: 20070319
  Serious: No
  Sender: FDA-Public Use
  Company Number: TPA2006A01410

PATIENT
  Age: 72 Year
  Sex: Female
  Weight: 86.1834 kg

DRUGS (11)
  1. ROZEREM [Suspect]
     Indication: INSOMNIA
     Dosage: 8 MG, QHS, PER ORAL
     Route: 048
     Dates: start: 20060822
  2. ALBUTEROL (SALBUTAMOL) (INHALANT) [Concomitant]
  3. SPIRIVA [Concomitant]
  4. BUSPIRONE HCL [Concomitant]
  5. TRANDATE [Concomitant]
  6. NEXIUM [Concomitant]
  7. LORAZEPAM [Concomitant]
  8. LEVOTHYROXIN (LEVOTHYROXINE) [Concomitant]
  9. LISINOPRIL [Concomitant]
  10. ZETIA [Concomitant]
  11. GABAPENTIN [Concomitant]

REACTIONS (6)
  - ASTHMA [None]
  - CHEST DISCOMFORT [None]
  - COUGH [None]
  - DYSPNOEA [None]
  - ERUCTATION [None]
  - PHARMACEUTICAL PRODUCT COMPLAINT [None]
